FAERS Safety Report 6629572-3 (Version None)
Quarter: 2010Q1

REPORT INFORMATION
  Report Type: 
  Country: None (occurrence: None)
  Receive Date: 20100311
  Receipt Date: 20100304
  Transmission Date: 20100710
  Serious: Yes (Hospitalization, Other)
  Sender: FDA-Public Use
  Company Number: BE-ABBOTT-10P-013-0618760-00

PATIENT
  Sex: Female

DRUGS (3)
  1. HUMIRA [Suspect]
     Indication: RHEUMATOID ARTHRITIS
     Dates: start: 20090120, end: 20090704
  2. LEDERTREXATE [Concomitant]
     Indication: ARTHRITIS
     Dosage: 4 CO PER WEEK
  3. MOBIC [Concomitant]
     Indication: ARTHRITIS

REACTIONS (4)
  - LUNG INFILTRATION [None]
  - OBLITERATIVE BRONCHIOLITIS [None]
  - PLEURISY [None]
  - PNEUMONIA [None]
